FAERS Safety Report 4369725-0 (Version None)
Quarter: 2004Q2

REPORT INFORMATION
  Report Type: 
  Country: None (occurrence: None)
  Receive Date: 20040527
  Receipt Date: 20040517
  Transmission Date: 20050107
  Serious: Yes (Death, Hospitalization)
  Sender: FDA-Public Use
  Company Number: 04P-122-0261384-00

PATIENT
  Age: 81 Year
  Sex: Male

DRUGS (8)
  1. ISOPTIN RETARD              (VERAPAMIL) [Suspect]
     Indication: CARDIAC DISORDER
  2. ISOPTIN RETARD              (VERAPAMIL) [Suspect]
     Indication: LUNG DISORDER
  3. SOTALOL HCL [Suspect]
     Indication: ATRIAL FIBRILLATION
     Dosage: 80 MG, 2 IN 1 D, PER ORAL
     Route: 048
     Dates: start: 20031223, end: 20031224
  4. DIGOXIN [Suspect]
     Indication: CARDIAC DISORDER
     Dosage: 0.05 MG, 1 IN 1 D
  5. DIGOXIN [Suspect]
     Indication: LUNG DISORDER
     Dosage: 0.05 MG, 1 IN 1 D
  6. DOXAZODIN MESILATE [Concomitant]
  7. ACETYLCYSTEINE [Concomitant]
  8. LOSARTAN POTASSIUM [Concomitant]

REACTIONS (5)
  - ATRIAL FIBRILLATION [None]
  - BRADYCARDIA [None]
  - CARDIOACTIVE DRUG LEVEL ABOVE THERAPEUTIC [None]
  - DRUG INTERACTION POTENTIATION [None]
  - RENAL IMPAIRMENT [None]
